FAERS Safety Report 9686594 (Version 3)
Quarter: 2013Q4

REPORT INFORMATION
  Report Type: Spontaneous
  Country: US (occurrence: US)
  Receive Date: 20131113
  Receipt Date: 20131210
  Transmission Date: 20140711
  Serious: Yes (Other)
  Sender: FDA-Public Use
  Company Number: US-GLAXOSMITHKLINE-A1049181A

PATIENT
  Age: 83 Year
  Sex: Female

DRUGS (6)
  1. CLONAZEPAM [Concomitant]
  2. UNSPECIFIED MEDICATION [Concomitant]
  3. ADVAIR [Suspect]
     Indication: CHRONIC OBSTRUCTIVE PULMONARY DISEASE
     Dosage: 1PUFF TWICE PER DAY
     Route: 055
     Dates: start: 20061024
  4. GLIMEPIRIDE [Concomitant]
  5. VITAMINS [Concomitant]
  6. ZOLOFT [Concomitant]

REACTIONS (2)
  - Oxygen supplementation [Unknown]
  - Pain in extremity [Unknown]
